FAERS Safety Report 20932448 (Version 1)
Quarter: 2022Q2

REPORT INFORMATION
  Report Type: Other
  Country: US (occurrence: None)
  Receive Date: 20220608
  Receipt Date: 20220608
  Transmission Date: 20220720
  Serious: No
  Sender: FDA-Public Use
  Company Number: US-ROCHE-2860276

PATIENT
  Age: 65 Year
  Sex: Male

DRUGS (17)
  1. TOCILIZUMAB [Suspect]
     Active Substance: TOCILIZUMAB
     Indication: COVID-19
     Route: 065
  2. LACTULOSE [Concomitant]
     Active Substance: LACTULOSE
  3. ANAKINRA [Concomitant]
     Active Substance: ANAKINRA
  4. ASCORBIC ACID [Concomitant]
     Active Substance: ASCORBIC ACID
  5. ENOXAPARIN [Concomitant]
     Active Substance: ENOXAPARIN
  6. THIAMINE [Concomitant]
     Active Substance: THIAMINE
  7. HYDROXYCHLOROQUINE [Concomitant]
     Active Substance: HYDROXYCHLOROQUINE
  8. ALBUTEROL [Concomitant]
     Active Substance: ALBUTEROL
  9. MEROPENEM [Concomitant]
     Active Substance: MEROPENEM
  10. HEPARIN [Concomitant]
     Active Substance: HEPARIN SODIUM
     Route: 042
  11. NOREPINEPHRINE [Concomitant]
     Active Substance: NOREPINEPHRINE
  12. METOCLOPRAMIDE [Concomitant]
     Active Substance: METOCLOPRAMIDE
  13. POLYETHYLENE GLYCOL [Concomitant]
     Active Substance: POLYETHYLENE GLYCOL
  14. SENNA [Concomitant]
     Active Substance: SENNA LEAF\SENNOSIDES\SENNOSIDES A AND B
  15. PROPOFOL [Concomitant]
     Active Substance: PROPOFOL
  16. KETAMINE [Concomitant]
     Active Substance: KETAMINE
  17. PIPERACILLIN AND TAZOBACTAM [Concomitant]
     Active Substance: PIPERACILLIN SODIUM\TAZOBACTAM SODIUM

REACTIONS (2)
  - Off label use [Unknown]
  - No adverse event [Unknown]
